FAERS Safety Report 15936898 (Version 2)
Quarter: 2019Q4

REPORT INFORMATION
  Report Type: Report from Study
  Country: CO (occurrence: CO)
  Receive Date: 20190208
  Receipt Date: 20191231
  Transmission Date: 20200122
  Serious: Yes (Hospitalization)
  Sender: FDA-Public Use
  Company Number: CO-ASTELLAS-2017US042255

PATIENT
  Age: 66 Year
  Sex: Female
  Weight: 63 kg

DRUGS (1)
  1. TACROLIMUS. [Suspect]
     Active Substance: TACROLIMUS
     Indication: RENAL DISORDER
     Route: 048
     Dates: start: 20151230

REACTIONS (4)
  - Peripheral swelling [Not Recovered/Not Resolved]
  - Ear pain [Recovering/Resolving]
  - Neck pain [Not Recovered/Not Resolved]
  - Inflammation [Recovering/Resolving]

NARRATIVE: CASE EVENT DATE: 20170901
